FAERS Safety Report 11583071 (Version 1)
Quarter: 2015Q4

REPORT INFORMATION
  Report Type: Spontaneous
  Country: US (occurrence: US)
  Receive Date: 20151001
  Receipt Date: 20151001
  Transmission Date: 20160304
  Serious: Yes (Other)
  Sender: FDA-Public Use
  Company Number: US-ROCHE-669528

PATIENT
  Age: 74 Year
  Sex: Male
  Weight: 104.3 kg

DRUGS (3)
  1. PEGASYS [Suspect]
     Active Substance: PEGINTERFERON ALFA-2A
     Indication: HEPATITIS C
     Dosage: ROUTE REPORTED AS INJ, FORM: PFS
     Route: 058
     Dates: start: 20091102, end: 20091123
  2. RIBASPHERE [Suspect]
     Active Substance: RIBAVIRIN
     Indication: HEPATITIS C
     Dosage: DIVIDED DOSES, FORM PILLS
     Route: 048
  3. LANTUS [Concomitant]
     Active Substance: INSULIN GLARGINE
     Dosage: TAKEN SINCE LAST 2-3 YEARS
     Route: 065

REACTIONS (8)
  - Dyspnoea [Recovered/Resolved]
  - Dizziness [Unknown]
  - Pain [Not Recovered/Not Resolved]
  - Heart rate increased [Not Recovered/Not Resolved]
  - Fatigue [Not Recovered/Not Resolved]
  - Injection site bruising [Recovered/Resolved]
  - Injection site erythema [Unknown]
  - Dizziness [Unknown]

NARRATIVE: CASE EVENT DATE: 20091102
